FAERS Safety Report 10306243 (Version 2)
Quarter: 2014Q3

REPORT INFORMATION
  Report Type: Spontaneous
  Country: US (occurrence: US)
  Receive Date: 20140715
  Receipt Date: 20140715
  Transmission Date: 20150326
  Serious: No
  Sender: FDA-Public Use
  Company Number: US-ASTRAZENECA-2010SE58748

PATIENT
  Age: 56 Year
  Sex: Female
  Weight: 77.1 kg

DRUGS (3)
  1. SEROQUEL [Suspect]
     Active Substance: QUETIAPINE FUMARATE
     Indication: BIPOLAR DISORDER
     Route: 048
  2. SEROQUEL [Suspect]
     Active Substance: QUETIAPINE FUMARATE
     Indication: BIPOLAR DISORDER
     Route: 048
  3. SEROQUEL [Suspect]
     Active Substance: QUETIAPINE FUMARATE
     Indication: BIPOLAR DISORDER
     Route: 048

REACTIONS (12)
  - Headache [Unknown]
  - Anger [Unknown]
  - Hyperhidrosis [Unknown]
  - Insomnia [Unknown]
  - Nausea [Unknown]
  - Retching [Unknown]
  - Drug dose omission [Not Recovered/Not Resolved]
  - Speech disorder [Unknown]
  - Weight increased [Unknown]
  - Withdrawal syndrome [Unknown]
  - Dyspepsia [Unknown]
  - Drug dispensing error [Not Recovered/Not Resolved]
